FAERS Safety Report 8792781 (Version 1)
Quarter: 2012Q4

REPORT INFORMATION
  Report Type: 
  Country: FR (occurrence: FR)
  Receive Date: 20120918
  Receipt Date: 20120918
  Transmission Date: 20130627
  Serious: Yes (Hospitalization)
  Sender: FDA-Public Use
  Company Number: FR-GLAXOSMITHKLINE-B0828896A

PATIENT
  Age: 62 Year
  Sex: Male

DRUGS (3)
  1. ARIXTRA [Suspect]
     Indication: DEEP VEIN THROMBOSIS
     Dosage: 7.5MG Per day
     Route: 058
     Dates: start: 20120724, end: 20120729
  2. PREVISCAN [Suspect]
     Indication: DEEP VEIN THROMBOSIS
     Dosage: 1.25TAB Per day
     Route: 048
     Dates: start: 20120724, end: 20120729
  3. FOSAVANCE [Suspect]
     Indication: OSTEOPOROSIS
     Dosage: 1TAB Weekly
     Route: 048
     Dates: end: 2012

REACTIONS (7)
  - Gastrointestinal haemorrhage [Recovered/Resolved]
  - Melaena [Recovered/Resolved]
  - Oesophagitis ulcerative [Recovering/Resolving]
  - Malaise [Unknown]
  - Orthostatic hypotension [Unknown]
  - Anaemia [Recovered/Resolved]
  - Thrombosis [Unknown]
